FAERS Safety Report 8011324 (Version 5)
Quarter: 2012Q4

REPORT INFORMATION
  Report Type: 
  Country: US (occurrence: US)
  Receive Date: 20110627
  Receipt Date: 20121217
  Transmission Date: 20130627
  Serious: Yes (Hospitalization, Other)
  Sender: FDA-Public Use
  Company Number: US-ELI_LILLY_AND_COMPANY-US201106004063

PATIENT
  Age: 59 Year
  Sex: Female

DRUGS (18)
  1. FORTEO [Suspect]
     Indication: OSTEOPOROSIS
     Dosage: 20 ug, qd
     Dates: start: 20110608, end: 20110610
  2. FORTEO [Suspect]
     Dosage: 20 ug, qd
     Dates: start: 20110613
  3. FORTEO [Suspect]
     Dosage: 20 ug, qd
  4. FORTEO [Suspect]
     Dosage: 20 ug, qd
     Dates: start: 201107
  5. FORTEO [Suspect]
     Dosage: UNK
     Dates: start: 20110701
  6. OSCAL [Concomitant]
  7. SYNTHROID [Concomitant]
  8. SIROLIMUS [Concomitant]
  9. STARLIX [Concomitant]
  10. POSACONAZOLE [Concomitant]
  11. CELLCEPT [Concomitant]
  12. PREDNISONE [Concomitant]
  13. BACTRIM [Concomitant]
  14. OMEPRAZOLE [Concomitant]
  15. PRAVASTATIN [Concomitant]
  16. VALCYTE [Concomitant]
  17. ASPIRIN [Concomitant]
  18. AMBIEN [Concomitant]

REACTIONS (8)
  - Bone pain [Unknown]
  - Back pain [Unknown]
  - Adrenal insufficiency [Unknown]
  - Hospitalisation [Unknown]
  - Drug dose omission [Recovered/Resolved]
  - Incorrect storage of drug [Unknown]
  - Malaise [Unknown]
  - Back pain [Not Recovered/Not Resolved]
